FAERS Safety Report 16062773 (Version 17)
Quarter: 2020Q3

REPORT INFORMATION
  Report Type: Report from Study
  Country: DE (occurrence: DE)
  Receive Date: 20190312
  Receipt Date: 20200819
  Transmission Date: 20201102
  Serious: Yes (Hospitalization, Other)
  Sender: FDA-Public Use
  Company Number: DE-BRISTOL-MYERS SQUIBB COMPANY-BMS-2016-114755

PATIENT
  Age: 64 Year
  Sex: Male
  Weight: 69 kg

DRUGS (33)
  1. VOTRIENT [Suspect]
     Active Substance: PAZOPANIB HYDROCHLORIDE
     Indication: METASTATIC RENAL CELL CARCINOMA
     Dosage: 800 MILLIGRAM, QD
     Route: 048
     Dates: start: 20160715, end: 20160928
  2. VOTRIENT [Suspect]
     Active Substance: PAZOPANIB HYDROCHLORIDE
     Dosage: 800 MILLIGRAM, QD
     Route: 048
     Dates: start: 20171006, end: 20171107
  3. AFINITOR [Suspect]
     Active Substance: EVEROLIMUS
     Indication: METASTATIC RENAL CELL CARCINOMA
     Dosage: 5 MILLIGRAM, QD
     Route: 048
     Dates: start: 20180416, end: 20190416
  4. AFINITOR [Suspect]
     Active Substance: EVEROLIMUS
     Dosage: 10 MILLIGRAM, QD
     Route: 048
     Dates: start: 20181031, end: 20190415
  5. AFINITOR [Suspect]
     Active Substance: EVEROLIMUS
     Dosage: 5 MILLIGRAM, QD
     Route: 048
     Dates: start: 20190417, end: 20191003
  6. AFINITOR [Suspect]
     Active Substance: EVEROLIMUS
     Dosage: 10 MILLIGRAM, QD
     Route: 048
     Dates: start: 20190123, end: 20190415
  7. AFINITOR [Suspect]
     Active Substance: EVEROLIMUS
     Dosage: 5 MILLIGRAM, QD
     Route: 048
     Dates: start: 20190710, end: 20191001
  8. PANTOPRAZOL BETA [Concomitant]
     Indication: PROPHYLAXIS
     Dosage: 40 MILLIGRAM, BID
     Route: 048
     Dates: start: 201601
  9. L?THYROXINE [LEVOTHYROXINE] [Concomitant]
     Active Substance: LEVOTHYROXINE
     Indication: HYPOTHYROIDISM
     Dosage: 75 MICROGRAM, QD
     Route: 048
     Dates: end: 20160929
  10. CABOZANTINIB [Concomitant]
     Active Substance: CABOZANTINIB
     Indication: PRODUCT USED FOR UNKNOWN INDICATION
     Dosage: 40 MILLIGRAM
     Route: 048
     Dates: start: 20190104, end: 20191212
  11. CABOZANTINIB [Concomitant]
     Active Substance: CABOZANTINIB
     Dosage: 20 MILLIGRAM
     Route: 048
  12. MUCOFALK [PLANTAGO AFRA SEED HUSK] [Concomitant]
     Active Substance: PLANTAGO AFRA SEED
     Indication: CONSTIPATION
     Dosage: 3.25 MILLIGRAM, PRN
     Route: 048
  13. NIVOLUMAB [Suspect]
     Active Substance: NIVOLUMAB
     Indication: METASTATIC RENAL CELL CARCINOMA
     Dosage: 3 MILLIGRAM/KILOGRAM
     Route: 042
     Dates: start: 20171212, end: 20180515
  14. VOTRIENT [Suspect]
     Active Substance: PAZOPANIB HYDROCHLORIDE
     Dosage: 800 MILLIGRAM, QD
     Route: 048
     Dates: start: 20161125, end: 20170125
  15. HCT?BETA [Concomitant]
     Indication: HYPERTENSION
     Dosage: 25 MILLIGRAM, QD
     Route: 048
  16. ALLOPURINOL. [Concomitant]
     Active Substance: ALLOPURINOL
     Indication: CHRONIC KIDNEY DISEASE
     Dosage: 300 MILLIGRAM, QD
     Route: 048
  17. AFINITOR [Suspect]
     Active Substance: EVEROLIMUS
     Dosage: 5 MILLIGRAM, QD
     Route: 048
     Dates: start: 20190507, end: 20190616
  18. LENVATINIB [Suspect]
     Active Substance: LENVATINIB
     Indication: RENAL CELL CARCINOMA
     Dosage: 10 MILLIGRAM, QD
     Route: 048
     Dates: start: 20190213
  19. ZOMETA [Suspect]
     Active Substance: ZOLEDRONIC ACID
     Indication: METASTASES TO BONE
     Dosage: 4 MILLIGRAM, QMO
     Route: 042
     Dates: start: 20131112, end: 20180507
  20. BELOC ZOK [Concomitant]
     Active Substance: METOPROLOL SUCCINATE
     Indication: ARRHYTHMIA
     Dosage: 47.5 MILLIGRAM, BID
     Route: 048
  21. VOTRIENT [Suspect]
     Active Substance: PAZOPANIB HYDROCHLORIDE
     Dosage: 800 MILLIGRAM, QD
     Route: 048
     Dates: start: 20160929, end: 20161124
  22. VOTRIENT [Suspect]
     Active Substance: PAZOPANIB HYDROCHLORIDE
     Dosage: 800 MILLIGRAM, QD
     Route: 048
     Dates: start: 20170713, end: 20171005
  23. AFINITOR [Suspect]
     Active Substance: EVEROLIMUS
     Dosage: 10 MILLIGRAM, QD
     Route: 048
     Dates: start: 20180808, end: 20181030
  24. AFINITOR [Suspect]
     Active Substance: EVEROLIMUS
     Dosage: 10 MILLIGRAM, QD
     Route: 048
     Dates: start: 20181031, end: 20190122
  25. L?THYROXINE [LEVOTHYROXINE] [Concomitant]
     Active Substance: LEVOTHYROXINE
     Dosage: 112 MICROGRAM, QD
     Route: 048
     Dates: start: 20160929
  26. VOTRIENT [Suspect]
     Active Substance: PAZOPANIB HYDROCHLORIDE
     Dosage: 800 MILLIGRAM, QD
     Route: 048
     Dates: start: 20170405, end: 20170712
  27. AFINITOR [Suspect]
     Active Substance: EVEROLIMUS
     Dosage: 5 MILLIGRAM
     Route: 048
     Dates: start: 20191004, end: 20191004
  28. FENISTIL [Concomitant]
     Active Substance: DIMETHINDENE
     Indication: PROPHYLAXIS
     Dosage: 1 MILLIGRAM, PRN
     Route: 048
  29. VOTRIENT [Suspect]
     Active Substance: PAZOPANIB HYDROCHLORIDE
     Dosage: 800 MILLIGRAM, QD
     Route: 048
     Dates: start: 20170126, end: 20170404
  30. AFINITOR [Suspect]
     Active Substance: EVEROLIMUS
     Dosage: 10 MILLIGRAM, QD
     Route: 048
     Dates: start: 20180516, end: 20180807
  31. LYRICA [Concomitant]
     Active Substance: PREGABALIN
     Indication: METASTASES TO BONE
     Dosage: 100 MILLIGRAM, BID
     Route: 065
     Dates: start: 20150803
  32. PSYLLIUM HYDROPHILIC MUCILLOID [Concomitant]
     Active Substance: PSYLLIUM HUSK
     Indication: CONSTIPATION
     Dosage: 3.25 MILLIGRAM, PRN
     Route: 048
  33. ZOPICLONE [Concomitant]
     Active Substance: ZOPICLONE
     Indication: SLEEP DISORDER
     Dosage: 7.5 MILLIGRAM, PRN
     Route: 048

REACTIONS (23)
  - Rash [Not Recovered/Not Resolved]
  - Leukopenia [Not Recovered/Not Resolved]
  - Skin swelling [Unknown]
  - Palmar-plantar erythrodysaesthesia syndrome [Recovered/Resolved]
  - Osteonecrosis of jaw [Not Recovered/Not Resolved]
  - Impaired healing [Recovered/Resolved]
  - Soft tissue infection [Unknown]
  - Hypothyroidism [Recovered/Resolved]
  - Acute sinusitis [Recovered/Resolved]
  - Blood urea increased [Not Recovered/Not Resolved]
  - Constipation [Not Recovered/Not Resolved]
  - Decreased appetite [Not Recovered/Not Resolved]
  - Gout [Recovering/Resolving]
  - Skin oedema [Unknown]
  - Hypertension [Not Recovered/Not Resolved]
  - Metastases to liver [Not Recovered/Not Resolved]
  - Diarrhoea [Not Recovered/Not Resolved]
  - Blood creatinine increased [Recovering/Resolving]
  - Oral herpes [Recovering/Resolving]
  - Vomiting [Not Recovered/Not Resolved]
  - Bone disorder [Unknown]
  - Nausea [Recovered/Resolved]
  - Abdominal distension [Recovering/Resolving]

NARRATIVE: CASE EVENT DATE: 20160722
